FAERS Safety Report 4684592-3 (Version None)
Quarter: 2005Q2

REPORT INFORMATION
  Report Type: 
  Country: None (occurrence: None)
  Receive Date: 20050531
  Receipt Date: 20050502
  Transmission Date: 20051028
  Serious: Yes (Hospitalization)
  Sender: FDA-Public Use
  Company Number: USA050290993

PATIENT
  Age: 60 Year
  Sex: Male

DRUGS (16)
  1. ZYPREXA [Suspect]
     Indication: BIPOLAR DISORDER
     Dosage: 2.5 MG AT BEDTIME
     Dates: start: 20040115, end: 20040130
  2. ATORVASTATIN CALCIUM [Concomitant]
  3. RABEPRAZOLE SODIUM [Concomitant]
  4. LOSARTAN [Concomitant]
  5. DILTIAZEM [Concomitant]
  6. BUPROPION [Concomitant]
  7. BUSPIRONE HCL [Concomitant]
  8. TRAZADONE (TRAZODONE) [Concomitant]
  9. SERTRALINE HCL [Concomitant]
  10. PIOGLITAZONE HCL [Concomitant]
  11. LORTAB [Concomitant]
  12. LANSOPRAZOLE [Concomitant]
  13. VALPROIC ACID [Concomitant]
  14. LEVOTHYROXINE [Concomitant]
  15. ATROVENT [Concomitant]
  16. SALMETEROL [Concomitant]

REACTIONS (1)
  - NEUROLEPTIC MALIGNANT SYNDROME [None]
